FAERS Safety Report 23470434 (Version 2)
Quarter: 2024Q1

REPORT INFORMATION
  Report Type: Spontaneous
  Country: FR (occurrence: FR)
  Receive Date: 20240202
  Receipt Date: 20240223
  Transmission Date: 20240410
  Serious: Yes (Hospitalization)
  Sender: FDA-Public Use
  Company Number: FR-ROCHE-3495823

PATIENT
  Age: 28 Year
  Sex: Male
  Weight: 78 kg

DRUGS (19)
  1. DOXORUBICIN HYDROCHLORIDE [Suspect]
     Active Substance: DOXORUBICIN HYDROCHLORIDE
     Indication: Diffuse large B-cell lymphoma
     Dosage: ON 18JAN2024, HE RECEIVED MOST RECENT DOSE OF DOXORUBICIN PRIOR TO AE AND SAE.
     Route: 042
     Dates: start: 20231228
  2. PREDNISONE [Suspect]
     Active Substance: PREDNISONE
     Indication: Diffuse large B-cell lymphoma
     Dosage: ON 18JAN2024, HE RECEIVED MOST RECENT DOSE OF PREDNISONE PRIOR TO AE AND SAE.
     Route: 048
     Dates: start: 20231228
  3. CYCLOPHOSPHAMIDE [Suspect]
     Active Substance: CYCLOPHOSPHAMIDE
     Indication: Diffuse large B-cell lymphoma
     Dosage: ON 18JAN2024, HE RECEIVED MOST RECENT DOSE (1480 MG) OF CYCLOPHOSPHAMIDE PRIOR TO AE AND SAE.
     Route: 042
     Dates: start: 20231228
  4. COTRIMOXAZOLE [Concomitant]
     Active Substance: SULFAMETHOXAZOLE\TRIMETHOPRIM
     Dosage: UNK, 3X/DAY
     Dates: start: 20231229
  5. FOLIC ACID [Concomitant]
     Active Substance: FOLIC ACID
     Dosage: FREQ:.33 D;
     Dates: start: 20231220
  6. LENOGRASTIM [Concomitant]
     Active Substance: LENOGRASTIM
     Dosage: 34 IU, 1X/DAY
     Dates: start: 20240104, end: 20240110
  7. LANSOPRAZOLE [Concomitant]
     Active Substance: LANSOPRAZOLE
     Dosage: 30 MG, 1X/DAY
     Dates: start: 20231219
  8. METOCLOPRAMIDE [Concomitant]
     Active Substance: METOCLOPRAMIDE
     Dosage: 10 MG, 1X/DAY
     Dates: start: 20231228, end: 20231228
  9. ONDANSETRON [Concomitant]
     Active Substance: ONDANSETRON
     Dosage: 8 MG, EVERY 3 WEEKS
     Dates: start: 20231228
  10. OXYCODONE HYDROCHLORIDE [Concomitant]
     Active Substance: OXYCODONE HYDROCHLORIDE
     Dosage: 5 MG, 1X/DAY
     Dates: start: 20231228, end: 20231228
  11. ACETAMINOPHEN [Concomitant]
     Active Substance: ACETAMINOPHEN
     Dosage: 1000 MG, EVERY 3 WEEKS
     Dates: start: 20231228
  12. ACETAMINOPHEN [Concomitant]
     Active Substance: ACETAMINOPHEN
     Dosage: 1000 MG, 1X/DAY
     Dates: start: 20231228, end: 20231228
  13. POLATUZUMAB VEDOTIN [Concomitant]
     Active Substance: POLATUZUMAB VEDOTIN
     Indication: Diffuse large B-cell lymphoma
     Dosage: ON 18JAN2024, HE RECEIVED MOST RECENT DOSE (140 MG) OF POLATUZUMAB VEDOTIN  PRIOR TO AE AND SAE.
     Dates: start: 20231229
  14. PREDNISONE [Concomitant]
     Active Substance: PREDNISONE
     Dosage: 50 MG, 1X/DAY
     Dates: start: 20231220, end: 20231227
  15. PREDNISONE [Concomitant]
     Active Substance: PREDNISONE
     Dosage: UNK
     Dates: start: 20231220, end: 20240103
  16. RITUXIMAB [Concomitant]
     Active Substance: RITUXIMAB
     Indication: Diffuse large B-cell lymphoma
     Dosage: ON 18JAN2024, HE RECEIVED MOST RECENT DOSE (740 MG) OF RITUXIMAB  PRIOR TO AE AND SAE.
     Dates: start: 20231228
  17. VALACYCLOVIR HYDROCHLORIDE [Concomitant]
     Active Substance: VALACYCLOVIR HYDROCHLORIDE
     Dosage: 500 MG, 1X/DAY
     Dates: start: 20231228
  18. VANCOMYCIN [Concomitant]
     Active Substance: VANCOMYCIN
     Dosage: 1170 MG, 1X/DAY
     Dates: start: 20240118, end: 20240118
  19. VANCOMYCIN [Concomitant]
     Active Substance: VANCOMYCIN
     Dosage: 2340 MG, 1X/DAY
     Dates: start: 20240119, end: 20240121

REACTIONS (1)
  - Pyrexia [Recovered/Resolved]

NARRATIVE: CASE EVENT DATE: 20240118
